FAERS Safety Report 10053870 (Version 1)
Quarter: 2014Q2

REPORT INFORMATION
  Report Type: Spontaneous
  Country: GB (occurrence: GB)
  Receive Date: 20140402
  Receipt Date: 20140402
  Transmission Date: 20141212
  Serious: Yes (Other)
  Sender: FDA-Public Use
  Company Number: PHFR2014GB002523

PATIENT
  Sex: Male

DRUGS (3)
  1. CLOZARIL [Suspect]
     Dosage: 600 MG, DAILY
     Route: 048
  2. SODIUM VALPROATE [Concomitant]
     Dosage: 400 MG, BID
     Route: 048
  3. HYOSCINE HYDROBROMIDE [Concomitant]
     Dosage: 300 UG, UNK
     Route: 048

REACTIONS (5)
  - Schizophrenia, paranoid type [Unknown]
  - Antisocial personality disorder [Unknown]
  - Mental disorder [Unknown]
  - Abnormal behaviour [Unknown]
  - Vascular dementia [Unknown]
